FAERS Safety Report 6958274-9 (Version None)
Quarter: 2010Q3

REPORT INFORMATION
  Report Type: 
  Country: None (occurrence: None)
  Receive Date: 20100831
  Receipt Date: 20100825
  Transmission Date: 20110219
  Serious: Yes (Hospitalization)
  Sender: FDA-Public Use
  Company Number: A0749285A

PATIENT
  Age: 63 Year
  Sex: Male
  Weight: 113.6 kg

DRUGS (11)
  1. AVANDIA [Suspect]
     Dosage: 4MG PER DAY
     Route: 065
     Dates: start: 20020301, end: 20070201
  2. LISINOPRIL [Concomitant]
  3. ATENOLOL [Concomitant]
  4. CYCLOBENZAPRINE [Concomitant]
  5. SIMVASTATIN [Concomitant]
  6. HYDROCHLOROTHIAZIDE [Concomitant]
  7. INSULIN GLARGINE [Concomitant]
  8. LORTAB [Concomitant]
  9. OXYCODONE [Concomitant]
  10. TRAMADOL HCL [Concomitant]
  11. HUMIRA [Concomitant]

REACTIONS (4)
  - ARTERIOSCLEROSIS [None]
  - CORONARY ARTERY DISEASE [None]
  - HEART INJURY [None]
  - MYOCARDIAL INFARCTION [None]
